FAERS Safety Report 15010822 (Version 2)
Quarter: 2018Q2

REPORT INFORMATION
  Report Type: Report from Study
  Country: BR (occurrence: BR)
  Receive Date: 20180614
  Receipt Date: 20180621
  Transmission Date: 20180711
  Serious: Yes (Death, Hospitalization)
  Sender: FDA-Public Use
  Company Number: BR-BAYER-2018-109793

PATIENT
  Age: 64 Year
  Sex: Male

DRUGS (7)
  1. DIAMICRON [Concomitant]
     Active Substance: GLICLAZIDE
     Dosage: 2 DF, QD
  2. LOSARTAN. [Concomitant]
     Active Substance: LOSARTAN
     Dosage: 2 DF, QD
  3. NEXAVAR [Suspect]
     Active Substance: SORAFENIB
     Indication: HEPATOCELLULAR CARCINOMA
     Dosage: 800 MG, QD
     Route: 048
  4. ESPIRONOLACTONA [Concomitant]
     Active Substance: SPIRONOLACTONE
     Dosage: 2 DF, QD
  5. ROXFLAN [Concomitant]
     Active Substance: AMLODIPINE BESYLATE
     Dosage: 2 DF, QD
  6. LASIX [Concomitant]
     Active Substance: FUROSEMIDE
     Dosage: 2 DF, QD
  7. GALVUS [Concomitant]
     Active Substance: VILDAGLIPTIN
     Dosage: 2 DF, QD

REACTIONS (6)
  - Death [Fatal]
  - Infection [Not Recovered/Not Resolved]
  - Blood creatinine increased [Not Recovered/Not Resolved]
  - Confusional state [Not Recovered/Not Resolved]
  - Blood pressure increased [Not Recovered/Not Resolved]
  - Blood potassium increased [Not Recovered/Not Resolved]

NARRATIVE: CASE EVENT DATE: 201806
